FAERS Safety Report 6103314-2 (Version None)
Quarter: 2009Q1

REPORT INFORMATION
  Report Type: 
  Country: None (occurrence: None)
  Receive Date: 20090305
  Receipt Date: 20090220
  Transmission Date: 20090719
  Serious: Yes (Hospitalization)
  Sender: FDA-Public Use
  Company Number: JP-SANOFI-SYNTHELABO-A01200901262

PATIENT
  Sex: Male
  Weight: 53 kg

DRUGS (10)
  1. LEVOFOLINATE FOR IV INFUSION [Concomitant]
     Indication: RECTAL CANCER
     Route: 041
     Dates: start: 20081208, end: 20081208
  2. LEVOFOLINATE FOR IV INFUSION [Concomitant]
     Route: 041
     Dates: start: 20090105, end: 20090120
  3. DECADRON [Concomitant]
     Indication: PREMEDICATION
     Route: 042
     Dates: start: 20081208, end: 20090120
  4. GRANISETRON [Concomitant]
     Indication: PREMEDICATION
     Route: 042
     Dates: start: 20081208, end: 20090120
  5. FLUOROURACIL [Concomitant]
     Indication: RECTAL CANCER
     Dosage: 491.7MG/BODY (330MG/M2) IN BOLUS THEN 1937MG/BODY/D1-2 (1300MG/M2/D1-2) AS CONTINUOUS INFUSION
     Route: 040
     Dates: start: 20081208, end: 20081208
  6. FLUOROURACIL [Concomitant]
     Route: 041
     Dates: start: 20081208, end: 20081209
  7. FLUOROURACIL [Concomitant]
     Dosage: 500MG/BODY (335.6MG/M2) IN BOLUS THEN 2000MG/BODY/D1-2 (1342.3MG/M2/D1-2) AS CONTINUOUS INFUSION
     Route: 040
     Dates: start: 20090105, end: 20090120
  8. FLUOROURACIL [Concomitant]
     Route: 041
     Dates: start: 20090105, end: 20090121
  9. AVASTIN [Suspect]
     Route: 041
     Dates: start: 20090120, end: 20090120
  10. ELPLAT [Suspect]
     Indication: RECTAL CANCER
     Route: 041
     Dates: start: 20090120, end: 20090120

REACTIONS (2)
  - PNEUMONIA [None]
  - PNEUMOTHORAX [None]
